FAERS Safety Report 9259190 (Version 1)
Quarter: 2013Q2

REPORT INFORMATION
  Report Type: Spontaneous
  Country: US (occurrence: US)
  Receive Date: 20130426
  Receipt Date: 20130426
  Transmission Date: 20140414
  Serious: No
  Sender: FDA-Public Use
  Company Number: US-ASTRAZENECA-2013SE23199

PATIENT
  Age: 53 Year
  Sex: Male
  Weight: 72.6 kg

DRUGS (2)
  1. LISINOPRIL [Suspect]
     Dosage: DAILY
     Route: 048
  2. CRESTOR [Suspect]
     Indication: BLOOD CHOLESTEROL
     Route: 048
     Dates: start: 2007

REACTIONS (2)
  - Myalgia [Recovered/Resolved]
  - Blood cholesterol abnormal [Unknown]
